FAERS Safety Report 24857007 (Version 1)
Quarter: 2025Q1

REPORT INFORMATION
  Report Type: Spontaneous
  Country: US (occurrence: None)
  Receive Date: 20250116
  Receipt Date: 20250116
  Transmission Date: 20250409
  Serious: Yes (Life-Threatening, Disabling, Other)
  Sender: FDA-CTU
  Company Number: None

PATIENT
  Age: 59 Year
  Sex: Female
  Weight: 72 kg

DRUGS (20)
  1. PRAVASTATIN [Suspect]
     Active Substance: PRAVASTATIN
     Indication: Blood cholesterol increased
     Dosage: 1 TABLET AT BEDTIME ORAL
     Route: 048
  2. ALLEGRA [Concomitant]
     Active Substance: FEXOFENADINE HYDROCHLORIDE
  3. FOLIC ACID [Concomitant]
     Active Substance: FOLIC ACID
  4. VITAMIN D3 [Concomitant]
     Active Substance: CHOLECALCIFEROL
  5. METHOTREXATE [Concomitant]
     Active Substance: METHOTREXATE
  6. OMEPRAZOLE [Concomitant]
     Active Substance: OMEPRAZOLE
  7. FAMOTIDINE [Concomitant]
     Active Substance: FAMOTIDINE
  8. ENALAPRIL [Concomitant]
     Active Substance: ENALAPRIL
  9. HYDROXYCHLOROQUINE [Concomitant]
     Active Substance: HYDROXYCHLOROQUINE
  10. ALLEGRA [Concomitant]
     Active Substance: FEXOFENADINE HYDROCHLORIDE
  11. PREDNISONE [Concomitant]
     Active Substance: PREDNISONE
  12. LEVOTHYROXINE [Concomitant]
     Active Substance: LEVOTHYROXINE
  13. CYCLOBENZAPRINE [Concomitant]
     Active Substance: CYCLOBENZAPRINE
  14. AMITRIPTYLINE [Concomitant]
     Active Substance: AMITRIPTYLINE
  15. fexofinadine [Concomitant]
  16. FLUTICASONE [Concomitant]
     Active Substance: FLUTICASONE
  17. VITAMINS [Concomitant]
     Active Substance: VITAMINS
  18. PROBIOTICS NOS [Concomitant]
     Active Substance: PROBIOTICS NOS
  19. ASPIRIN [Concomitant]
     Active Substance: ASPIRIN
  20. DEVICE [Concomitant]
     Active Substance: DEVICE

REACTIONS (17)
  - Muscular weakness [None]
  - Fatigue [None]
  - Weight decreased [None]
  - Asthenia [None]
  - Dyspnoea [None]
  - Therapy cessation [None]
  - Blood creatine phosphokinase increased [None]
  - Chest pain [None]
  - Connective tissue disorder [None]
  - Renal impairment [None]
  - Myositis [None]
  - Insomnia [None]
  - Pain [None]
  - Brain fog [None]
  - Emotional disorder [None]
  - Economic problem [None]
  - Quality of life decreased [None]

NARRATIVE: CASE EVENT DATE: 20210203
